FAERS Safety Report 18238642 (Version 2)
Quarter: 2020Q4

REPORT INFORMATION
  Report Type: Report from Study
  Country: IT (occurrence: IT)
  Receive Date: 20200907
  Receipt Date: 20201009
  Transmission Date: 20210113
  Serious: Yes (Other)
  Sender: FDA-Public Use
  Company Number: NVSC2020IT242856

PATIENT
  Age: 35 Year
  Sex: Male

DRUGS (2)
  1. FINGOLIMOD. [Suspect]
     Active Substance: FINGOLIMOD
     Indication: PRODUCT USED FOR UNKNOWN INDICATION
     Dosage: UNK UNK, QD
     Route: 065
     Dates: start: 2015
  2. FINGOLIMOD. [Suspect]
     Active Substance: FINGOLIMOD
     Dosage: UNK, QOD
     Route: 065
     Dates: start: 2018

REACTIONS (10)
  - Oropharyngeal pain [Recovered/Resolved]
  - Neutropenia [Unknown]
  - Visual field defect [Unknown]
  - Paraesthesia [Unknown]
  - Cough [Recovered/Resolved]
  - Lymphopenia [Unknown]
  - Coronavirus infection [Recovered/Resolved]
  - Hypoaesthesia [Unknown]
  - Balance disorder [Unknown]
  - Muscular weakness [Unknown]

NARRATIVE: CASE EVENT DATE: 201808
